FAERS Safety Report 7749024-7 (Version None)
Quarter: 2011Q3

REPORT INFORMATION
  Report Type: 
  Country: None (occurrence: None)
  Receive Date: 20110909
  Receipt Date: 20110825
  Transmission Date: 20111222
  Serious: Yes (Hospitalization, Other)
  Sender: FDA-Public Use
  Company Number: AUR-APL-2011-04850

PATIENT
  Age: 35 Year
  Sex: Female

DRUGS (5)
  1. LEXAPRO [Concomitant]
  2. VENLAFAXINE [Suspect]
     Indication: DEPRESSION
     Dosage: 300 MG (300 MG, 1 IN 1 D), ORAL
     Route: 048
     Dates: start: 20101018, end: 20101231
  3. EFFEXOR XR [Suspect]
     Indication: DEPRESSION
     Dosage: 75;300  MG (75 MG, 1 IN 1 D) ORAL
     Route: 048
     Dates: start: 20030101
  4. EFFEXOR XR [Suspect]
     Indication: DEPRESSION
     Dosage: 75;300  MG (75 MG, 1 IN 1 D) ORAL
     Route: 048
     Dates: end: 20101017
  5. EFFEXOR XR [Suspect]
     Indication: DEPRESSION
     Dosage: 75;300  MG (75 MG, 1 IN 1 D) ORAL
     Route: 048
     Dates: start: 20110101

REACTIONS (6)
  - ANAEMIA [None]
  - ANXIETY [None]
  - FATIGUE [None]
  - TEARFULNESS [None]
  - SUICIDE ATTEMPT [None]
  - DEPRESSION [None]
